FAERS Safety Report 24779944 (Version 1)
Quarter: 2024Q4

REPORT INFORMATION
  Report Type: Report from Study
  Country: US (occurrence: US)
  Receive Date: 20241226
  Receipt Date: 20241226
  Transmission Date: 20250115
  Serious: Yes (Other)
  Sender: EMD SERONO INC
  Company Number: US-Merck Healthcare KGaA-2024067393

PATIENT
  Sex: Female

DRUGS (2)
  1. REBIF [Suspect]
     Active Substance: INTERFERON BETA-1A
     Indication: Multiple sclerosis
     Dates: start: 20020309, end: 20090121
  2. REBIF [Suspect]
     Active Substance: INTERFERON BETA-1A
     Dates: start: 20090724, end: 20140102

REACTIONS (1)
  - Osteonecrosis [Unknown]
